FAERS Safety Report 22299587 (Version 1)
Quarter: 2023Q2

REPORT INFORMATION
  Report Type: Spontaneous
  Country: US (occurrence: None)
  Receive Date: 20230508
  Receipt Date: 20230508
  Transmission Date: 20230722
  Serious: No
  Sender: FDA-Public Use
  Company Number: None

PATIENT
  Age: 29 Year
  Sex: Female
  Weight: 82.35 kg

DRUGS (1)
  1. OFLOXACIN OPHTHALMIC [Suspect]
     Active Substance: OFLOXACIN
     Indication: Conjunctivitis
     Dosage: FREQUENCY : EVERY 4 HOURS;?
     Route: 047
     Dates: start: 20230222, end: 20230322

REACTIONS (2)
  - Drug ineffective [None]
  - Impaired work ability [None]

NARRATIVE: CASE EVENT DATE: 20230222
